FAERS Safety Report 12418633 (Version 1)
Quarter: 2016Q2

REPORT INFORMATION
  Report Type: Spontaneous
  Country: VN (occurrence: VN)
  Receive Date: 20160531
  Receipt Date: 20160531
  Transmission Date: 20160815
  Serious: Yes (Other)
  Sender: FDA-Public Use
  Company Number: VN-ROCHE-1765799

PATIENT
  Age: 30 Year
  Sex: Female

DRUGS (3)
  1. HYDROCORTISONE. [Concomitant]
     Active Substance: HYDROCORTISONE
     Indication: PNEUMONIA
     Route: 065
  2. OSELTAMIVIR [Suspect]
     Active Substance: OSELTAMIVIR
     Indication: INFLUENZA A VIRUS TEST POSITIVE
     Route: 065
  3. MEROPENEM. [Concomitant]
     Active Substance: MEROPENEM
     Indication: PNEUMONIA
     Route: 065

REACTIONS (2)
  - Maternal exposure during pregnancy [Unknown]
  - Acute respiratory distress syndrome [Recovered/Resolved]
